FAERS Safety Report 16430558 (Version 1)
Quarter: 2019Q2

REPORT INFORMATION
  Report Type: Spontaneous
  Country: US (occurrence: US)
  Receive Date: 20190614
  Receipt Date: 20190614
  Transmission Date: 20190711
  Serious: Yes (Other)
  Sender: FDA-Public Use
  Company Number: US-AUROBINDO-AUR-APL-2019-035293

PATIENT

DRUGS (3)
  1. FOLOTYN [Suspect]
     Active Substance: PRALATREXATE
     Dosage: 20 MG/M2
     Route: 065
     Dates: start: 201905
  2. FOLOTYN [Suspect]
     Active Substance: PRALATREXATE
     Dosage: 30 MG/M2
     Route: 065
  3. FOLOTYN [Suspect]
     Active Substance: PRALATREXATE
     Indication: PERIPHERAL T-CELL LYMPHOMA UNSPECIFIED
     Dosage: 15 MG/M2
     Route: 065
     Dates: start: 201903

REACTIONS (4)
  - Prostate cancer [Unknown]
  - Back pain [Unknown]
  - Prostatic specific antigen increased [Unknown]
  - Myalgia [Unknown]
